FAERS Safety Report 16934270 (Version 1)
Quarter: 2019Q4

REPORT INFORMATION
  Report Type: Report from Study
  Country: US (occurrence: US)
  Receive Date: 20191018
  Receipt Date: 20191018
  Transmission Date: 20200122
  Serious: Yes (Other)
  Sender: FDA-Public Use
  Company Number: US-ROCHE-2060562

PATIENT
  Sex: Male
  Weight: 31.6 kg

DRUGS (5)
  1. NUTROPIN AQ [Suspect]
     Active Substance: SOMATROPIN
     Dosage: 10 MG/2 ML
     Route: 058
     Dates: start: 20100519, end: 20150112
  2. NUTROPIN AQ [Suspect]
     Active Substance: SOMATROPIN
     Indication: GROWTH HORMONE DEFICIENCY
     Route: 058
     Dates: start: 20100510
  3. DIAMOX SEQUELS [Concomitant]
     Active Substance: ACETAZOLAMIDE
  4. NUTROPIN AQ [Suspect]
     Active Substance: SOMATROPIN
     Route: 058
  5. NORDITROPIN [Concomitant]
     Active Substance: SOMATROPIN
     Route: 065

REACTIONS (13)
  - Headache [Unknown]
  - Pneumonia [Unknown]
  - Idiopathic intracranial hypertension [Unknown]
  - Ulna fracture [Unknown]
  - Papilloedema [Recovered/Resolved]
  - Blood pressure increased [Unknown]
  - Epistaxis [Unknown]
  - Papilloedema [Unknown]
  - Vision blurred [Unknown]
  - Salmonellosis [Unknown]
  - Wheezing [Unknown]
  - Radius fracture [Unknown]
  - Idiopathic intracranial hypertension [Unknown]

NARRATIVE: CASE EVENT DATE: 2012
